FAERS Safety Report 5165036-4 (Version None)
Quarter: 2006Q4

REPORT INFORMATION
  Report Type: 
  Country: None (occurrence: None)
  Receive Date: 20061124
  Receipt Date: 20061108
  Transmission Date: 20070319
  Serious: No
  Sender: FDA-Public Use
  Company Number: 2006129941

PATIENT
  Age: 80 Year
  Sex: Female

DRUGS (3)
  1. PRAZOSIN GITS [Suspect]
     Indication: HYPERTENSION
     Dosage: 2 MG (1 MG, 2 IN 1 D);
     Dates: start: 20060701
  2. ZANIDIP (LERCANIDIPINE HYDROCHLORIDE) [Concomitant]
  3. GLUCOSAMINE [Concomitant]

REACTIONS (3)
  - DYSPNOEA [None]
  - LYMPHOEDEMA [None]
  - OEDEMA PERIPHERAL [None]
